FAERS Safety Report 19719490 (Version 1)
Quarter: 2021Q3

REPORT INFORMATION
  Report Type: Spontaneous
  Country: US (occurrence: US)
  Receive Date: 20210818
  Receipt Date: 20210818
  Transmission Date: 20211014
  Serious: Yes (Hospitalization)
  Sender: FDA-Public Use
  Company Number: None

PATIENT
  Age: 55 Year
  Sex: Female
  Weight: 53.52 kg

DRUGS (1)
  1. LORAZEPAM 0.5MG [Suspect]
     Active Substance: LORAZEPAM
     Indication: SEIZURE
     Dosage: ?          QUANTITY:1 MG MILLIGRAM(S);?
     Route: 042
     Dates: start: 20201217, end: 20201219

REACTIONS (13)
  - Dizziness [None]
  - Syncope [None]
  - Tremor [None]
  - Hyperhidrosis [None]
  - Paraesthesia [None]
  - Dyskinesia [None]
  - Dysarthria [None]
  - Depressed mood [None]
  - Hypopnoea [None]
  - Chest discomfort [None]
  - Fatigue [None]
  - Asthenia [None]
  - Claustrophobia [None]

NARRATIVE: CASE EVENT DATE: 20201217
